FAERS Safety Report 11803588 (Version 3)
Quarter: 2016Q1

REPORT INFORMATION
  Report Type: Report from Study
  Country: CH (occurrence: CH)
  Receive Date: 20151204
  Receipt Date: 20160108
  Transmission Date: 20160525
  Serious: Yes (Hospitalization)
  Sender: FDA-Public Use
  Company Number: CH-ABBVIE-15P-151-1511871-00

PATIENT
  Sex: Male

DRUGS (1)
  1. DUODOPA [Suspect]
     Active Substance: CARBIDOPA\LEVODOPA
     Indication: PARKINSON^S DISEASE
     Dosage: AM DOSE:8ML,CONT.DOSE DAY: 2.7ML/CONT.DOSE NIGHT: 2.7ML/H, E.D.: 2ML
     Route: 050
     Dates: start: 20150924

REACTIONS (3)
  - Device issue [Unknown]
  - Drug ineffective [Unknown]
  - Abasia [Unknown]
